FAERS Safety Report 24041555 (Version 1)
Quarter: 2024Q3

REPORT INFORMATION
  Report Type: Spontaneous
  Country: US (occurrence: US)
  Receive Date: 20240702
  Receipt Date: 20240702
  Transmission Date: 20241017
  Serious: No
  Sender: SAREPTA THERAPEUTICS
  Company Number: US-SAREPTA THERAPEUTICS INC.-SRP2023-003957

PATIENT
  Sex: Male
  Weight: 97 kg

DRUGS (10)
  1. EXONDYS 51 [Suspect]
     Active Substance: ETEPLIRSEN
     Indication: Duchenne muscular dystrophy
     Dosage: 2700 MILLIGRAM, WEEKLY
     Route: 042
     Dates: start: 20190329, end: 20230824
  2. EXONDYS 51 [Suspect]
     Active Substance: ETEPLIRSEN
     Dosage: 2700 MILLIGRAM, WEEKLY
     Route: 042
     Dates: start: 20230902, end: 20231014
  3. EXONDYS 51 [Suspect]
     Active Substance: ETEPLIRSEN
     Dosage: 2900 MILLIGRAM, WEEKLY
     Route: 042
     Dates: start: 20231021
  4. VITAMIN D NOS [Concomitant]
     Active Substance: CHOLECALCIFEROL\ERGOCALCIFEROL
     Indication: Product used for unknown indication
     Dosage: 125 MICROGRAM, 5 TIMES PER WEEK
  5. HYDROCORTISONE [Concomitant]
     Active Substance: HYDROCORTISONE\HYDROCORTISONE ACETATE
     Indication: Product used for unknown indication
     Dosage: 5 MILLIGRAM TABLET
     Dates: start: 20230102
  6. HYDROCORTISONE SODIUM SUCCINATE [Concomitant]
     Active Substance: HYDROCORTISONE SODIUM SUCCINATE
     Indication: Product used for unknown indication
     Dosage: 100 MILLIGRAM, 2 ML INJECTED INTO MUSCLE AS NEEDED
     Route: 030
     Dates: start: 20230102
  7. OMEGA-3 FATTY ACIDS [Concomitant]
     Active Substance: OMEGA-3 FATTY ACIDS
     Indication: Product used for unknown indication
     Dosage: 1200 MILLIGRAM, CAPSULE
     Route: 048
  8. PREDNISONE [Concomitant]
     Active Substance: PREDNISONE
     Indication: Product used for unknown indication
     Dosage: 50 MILLIGRAM, 3 TABLET BY MOUTH ON SATURDAY AND SUNDAY
     Route: 048
     Dates: start: 20230313
  9. CALCIUM CARBONATE [Concomitant]
     Active Substance: CALCIUM CARBONATE
     Indication: Product used for unknown indication
     Dosage: 100 MILLIGRAM TABLET CHEWABLE 1 TABLET, TID
  10. CULTURELLE [Concomitant]
     Active Substance: LACTOBACILLUS RHAMNOSUS
     Indication: Product used for unknown indication
     Dosage: UNK

REACTIONS (3)
  - Underdose [Unknown]
  - Product communication issue [Unknown]
  - No adverse event [Unknown]
